FAERS Safety Report 5177164-8 (Version None)
Quarter: 2006Q4

REPORT INFORMATION
  Report Type: 
  Country: None (occurrence: None)
  Receive Date: 20061218
  Receipt Date: 20050221
  Transmission Date: 20070319
  Serious: Yes (Hospitalization, Other)
  Sender: FDA-Public Use
  Company Number: PHRM2005FR00858

PATIENT
  Age: 61 Year
  Sex: Female
  Weight: 63 kg

DRUGS (17)
  1. ZOMETA [Suspect]
     Indication: MULTIPLE MYELOMA
     Dosage: 4 MG, QMO
     Route: 042
     Dates: start: 20031119, end: 20031119
  2. ZOMETA [Suspect]
     Dosage: 4 MG, QMO
     Route: 042
     Dates: start: 20031203, end: 20031203
  3. ZOMETA [Suspect]
     Dosage: 4 MG, QMO
     Route: 042
     Dates: start: 20040216, end: 20040216
  4. ZOMETA [Suspect]
     Dosage: 4 MG, QMO
     Route: 042
     Dates: start: 20040316, end: 20040316
  5. ZOMETA [Suspect]
     Dosage: 4 MG, QMO
     Route: 042
     Dates: start: 20040414, end: 20040414
  6. ZOMETA [Suspect]
     Dosage: 4 MG, QMO
     Route: 042
     Dates: start: 20040514, end: 20040514
  7. ZOMETA [Suspect]
     Dosage: 4 MG, QMO
     Route: 042
     Dates: start: 20040610, end: 20040610
  8. ZOMETA [Suspect]
     Dosage: 4 MG, QMO
     Route: 042
     Dates: start: 20040709, end: 20040709
  9. ZOMETA [Suspect]
     Dosage: 4 MG, QMO
     Route: 042
     Dates: start: 20040805, end: 20040805
  10. ZOMETA [Suspect]
     Dosage: 4 MG, QMO
     Route: 042
     Dates: start: 20040902, end: 20040902
  11. ZOMETA [Suspect]
     Dosage: 4 MG, QMO
     Route: 042
     Dates: start: 20041008, end: 20041008
  12. ANAFRANIL [Concomitant]
     Dosage: 75 MG, QD
     Route: 048
     Dates: start: 20040211, end: 20040709
  13. SKENAN [Concomitant]
     Dosage: 20 MG, BID
     Route: 048
     Dates: start: 20040211, end: 20040806
  14. LEXOMIL [Concomitant]
     Dosage: 3 MG/D
  15. ZOLPIDEM TARTRATE [Concomitant]
     Dosage: 5 MG/D
  16. ZELITREX [Concomitant]
     Dosage: 1000 MG/D
  17. NEORECORMON ^ROCHE^ [Concomitant]
     Dosage: 30000 IU, QW

REACTIONS (14)
  - BONE DISORDER [None]
  - CALCIUM DEFICIENCY [None]
  - DENTAL OPERATION [None]
  - GRANULOMA [None]
  - HYPOAESTHESIA [None]
  - MUSCULOSKELETAL CHEST PAIN [None]
  - ORAL CAVITY FISTULA [None]
  - OSTEITIS [None]
  - OSTEONECROSIS [None]
  - PAIN IN JAW [None]
  - PURULENT DISCHARGE [None]
  - SURGERY [None]
  - TOOTH EXTRACTION [None]
  - WOUND DEBRIDEMENT [None]
